FAERS Safety Report 7219894-X (Version None)
Quarter: 2011Q1

REPORT INFORMATION
  Report Type: 
  Country: None (occurrence: None)
  Receive Date: 20110111
  Receipt Date: 20110103
  Transmission Date: 20110831
  Serious: Yes (Other)
  Sender: FDA-Public Use
  Company Number: PHHY2011SI01274

PATIENT
  Age: 71 Year
  Sex: Male

DRUGS (6)
  1. EXJADE [Suspect]
     Dosage: 2500 MG, DAILY
     Dates: start: 20091123
  2. EXJADE [Suspect]
     Dosage: 2625 MG, DAILY
     Dates: start: 20100125
  3. EXJADE [Suspect]
     Dosage: 2000 MG, DAILY
     Dates: start: 20090901
  4. EXJADE [Suspect]
     Indication: IRON OVERLOAD
     Dosage: 17 MG/KG, UNK
     Dates: start: 20081009, end: 20081120
  5. EXJADE [Suspect]
     Dosage: 24 MG/KG, UNK
     Dates: start: 20090122
  6. EXJADE [Suspect]
     Dosage: 17 MG/KG, UNK
     Dates: start: 20081211, end: 20090122

REACTIONS (5)
  - WEIGHT DECREASED [None]
  - HAEMOGLOBIN DECREASED [None]
  - ABDOMINAL PAIN [None]
  - PLATELET COUNT DECREASED [None]
  - DIARRHOEA [None]
